FAERS Safety Report 12170252 (Version 2)
Quarter: 2016Q2

REPORT INFORMATION
  Report Type: Spontaneous
  Country: US (occurrence: US)
  Receive Date: 20160311
  Receipt Date: 20160401
  Transmission Date: 20160815
  Serious: No
  Sender: FDA-Public Use
  Company Number: US-009507513-1603USA005259

PATIENT
  Age: 83 Year
  Sex: Female

DRUGS (1)
  1. ZETIA [Suspect]
     Active Substance: EZETIMIBE
     Indication: BLOOD CHOLESTEROL
     Dosage: 10 MG, UNK
     Route: 048
     Dates: start: 20160303, end: 20160306

REACTIONS (6)
  - Muscular weakness [Recovering/Resolving]
  - Asthenia [Recovering/Resolving]
  - Head discomfort [Recovering/Resolving]
  - Amnesia [Recovering/Resolving]
  - Abnormal sensation in eye [Recovering/Resolving]
  - Malaise [Unknown]

NARRATIVE: CASE EVENT DATE: 201603
